FAERS Safety Report 5377129-7 (Version None)
Quarter: 2007Q3

REPORT INFORMATION
  Report Type: 
  Country: None (occurrence: None)
  Receive Date: 20070703
  Receipt Date: 20070626
  Transmission Date: 20080115
  Serious: Yes (Hospitalization)
  Sender: FDA-Public Use
  Company Number: US-AVENTIS-200714120US

PATIENT
  Sex: Male
  Weight: 94.5 kg

DRUGS (14)
  1. LANTUS [Suspect]
     Dates: start: 20060101, end: 20070519
  2. LANTUS [Suspect]
     Dates: start: 20070520, end: 20070501
  3. LANTUS [Suspect]
     Dates: start: 20070601
  4. APIDRA [Suspect]
     Dosage: DOSE: UNK
  5. ALLOPURINOL [Suspect]
     Dosage: DOSE: UNK
     Dates: start: 20070417, end: 20070529
  6. DIOVAN [Concomitant]
     Dosage: DOSE: UNK
  7. ATENOLOL [Concomitant]
     Dosage: DOSE: UNK
  8. CLONIDINE [Concomitant]
     Dosage: DOSE: UNK
  9. CLONAZEPAM [Concomitant]
     Dosage: DOSE: UNK
  10. RENAGEL                            /01459902/ [Concomitant]
     Dosage: DOSE: UNK
  11. LYRICA [Concomitant]
     Dosage: DOSE: UNK
  12. METENIX [Concomitant]
     Dosage: DOSE: UNK
  13. REGULAR INSULIN [Concomitant]
     Dosage: DOSE: LOW DOSE GIVEN IN HOSPITAL
     Dates: start: 20070501, end: 20070501
  14. GEMFIBROZIL [Concomitant]
     Dosage: DOSE: UNK

REACTIONS (5)
  - CONDITION AGGRAVATED [None]
  - DRUG RASH WITH EOSINOPHILIA AND SYSTEMIC SYMPTOMS [None]
  - PRURITUS [None]
  - PYREXIA [None]
  - RASH [None]
